FAERS Safety Report 25628318 (Version 1)
Quarter: 2025Q3

REPORT INFORMATION
  Report Type: Spontaneous
  Country: EU (occurrence: EU)
  Receive Date: 20250731
  Receipt Date: 20250731
  Transmission Date: 20251021
  Serious: Yes (Other)
  Sender: BRACCO
  Company Number: EU-BRACCO-2025BG05022

PATIENT
  Age: 39 Year
  Sex: Male

DRUGS (4)
  1. VUEWAY [Suspect]
     Active Substance: GADOPICLENOL
     Indication: Angiogram
     Route: 042
     Dates: start: 20250718, end: 20250718
  2. ENOXAPARIN SODIUM [Concomitant]
     Active Substance: ENOXAPARIN SODIUM
  3. LEVETIRACETAM [Concomitant]
     Active Substance: LEVETIRACETAM
     Dosage: 500 MG, 2 TABLETS DAILY
  4. METHIMAZOLE [Concomitant]
     Active Substance: METHIMAZOLE
     Dosage: 5 MG, 2 TABLETS DAILY

REACTIONS (2)
  - Rash [Recovered/Resolved]
  - Product use in unapproved indication [Unknown]

NARRATIVE: CASE EVENT DATE: 20250718
